FAERS Safety Report 15330256 (Version 2)
Quarter: 2018Q3

REPORT INFORMATION
  Report Type: Spontaneous
  Country: US (occurrence: US)
  Receive Date: 20180829
  Receipt Date: 20180910
  Transmission Date: 20181010
  Serious: Yes (Other)
  Sender: FDA-Public Use
  Company Number: US-SA-2018SA235948

PATIENT
  Age: 71 Year
  Sex: Female

DRUGS (2)
  1. METFORMIN [Concomitant]
     Active Substance: METFORMIN HYDROCHLORIDE
     Dosage: UNK, UNK
     Route: 065
  2. LANTUS SOLOSTAR [Suspect]
     Active Substance: INSULIN GLARGINE
     Indication: PRODUCT USED FOR UNKNOWN INDICATION
     Dosage: 10 OR 11 UNITS, QD
     Route: 065
     Dates: start: 20180703

REACTIONS (5)
  - Urinary tract infection [Unknown]
  - Drug dose omission [Unknown]
  - Dizziness [Unknown]
  - Device operational issue [Unknown]
  - Blood glucose decreased [Unknown]
